FAERS Safety Report 11743535 (Version 9)
Quarter: 2017Q1

REPORT INFORMATION
  Report Type: Spontaneous
  Country: US (occurrence: US)
  Receive Date: 20151116
  Receipt Date: 20170216
  Transmission Date: 20170428
  Serious: Yes (Hospitalization, Congenital Anomaly, Other)
  Sender: FDA-Public Use
  Company Number: PHEH2015US023722

PATIENT
  Sex: Female

DRUGS (3)
  1. ONDANSETRON [Suspect]
     Active Substance: ONDANSETRON
     Indication: FOETAL EXPOSURE DURING PREGNANCY
     Route: 064
  2. ZOFRAN [Suspect]
     Active Substance: ONDANSETRON HYDROCHLORIDE
     Indication: FOETAL EXPOSURE DURING PREGNANCY
     Route: 064
  3. ONDANSETRON DR REDDY [Suspect]
     Active Substance: ONDANSETRON
     Indication: FOETAL EXPOSURE DURING PREGNANCY
     Dosage: MOTHER^S DOSE: 4 MG PRN (EVERY 4 TO 6 HOURS)
     Route: 064

REACTIONS (53)
  - Multiple congenital abnormalities [Unknown]
  - Poor weight gain neonatal [Unknown]
  - Sepsis neonatal [Unknown]
  - Impaired gastric emptying [Unknown]
  - Fall [Unknown]
  - Abdominal pain [Unknown]
  - Developmental delay [Unknown]
  - Eustachian tube dysfunction [Unknown]
  - Left-to-right cardiac shunt [Unknown]
  - Autosomal chromosome anomaly [Unknown]
  - Mitral valve incompetence [Unknown]
  - Hypotonia neonatal [Unknown]
  - Otitis media chronic [Unknown]
  - Injury [Unknown]
  - Emotional distress [Unknown]
  - Head injury [Unknown]
  - Candida infection [Unknown]
  - Dermatitis atopic [Unknown]
  - Abnormal behaviour [Unknown]
  - Adenoidal hypertrophy [Unknown]
  - Constipation [Unknown]
  - Ventricular septal defect [Unknown]
  - Neonatal tachypnoea [Unknown]
  - Neonatal hyponatraemia [Unknown]
  - Haemorrhage intracranial [Unknown]
  - Pericardial effusion [Unknown]
  - Foetal exposure during pregnancy [Unknown]
  - Dysphonia [Unknown]
  - Selective eating disorder [Unknown]
  - Motor developmental delay [Unknown]
  - Sinus disorder [Unknown]
  - Anxiety [Unknown]
  - Heart disease congenital [Unknown]
  - Congenital aortic anomaly [Unknown]
  - Patent ductus arteriosus [Unknown]
  - Chromosomal deletion [Unknown]
  - Sickle cell trait [Unknown]
  - Choking [Unknown]
  - Pain [Unknown]
  - Cardiomegaly [Unknown]
  - Respiratory disorder neonatal [Unknown]
  - Vomiting [Unknown]
  - Nasal congestion [Unknown]
  - Cough [Unknown]
  - Congenital anomaly [Unknown]
  - Failure to thrive [Unknown]
  - Cardiac failure congestive [Unknown]
  - Anhedonia [Unknown]
  - Fallot^s tetralogy [Unknown]
  - Pulmonary artery stenosis congenital [Unknown]
  - Neonatal respiratory distress syndrome [Unknown]
  - Gastrooesophageal reflux disease [Unknown]
  - Sleep apnoea syndrome [Unknown]
